FAERS Safety Report 20338083 (Version 1)
Quarter: 2022Q1

REPORT INFORMATION
  Report Type: Spontaneous
  Country: US (occurrence: US)
  Receive Date: 20220115
  Receipt Date: 20220115
  Transmission Date: 20220424
  Serious: Yes (Death, Other)
  Sender: FDA-Public Use
  Company Number: US-JNJFOC-20220112811

PATIENT
  Sex: Female

DRUGS (2)
  1. UPTRAVI [Suspect]
     Active Substance: SELEXIPAG
     Indication: Pulmonary hypertension
     Route: 048
     Dates: start: 20190813
  2. AMBRISENTAN [Suspect]
     Active Substance: AMBRISENTAN
     Indication: Pulmonary hypertension
     Route: 065
     Dates: start: 20190418

REACTIONS (2)
  - Pulmonary arterial hypertension [Fatal]
  - Scleroderma [Fatal]
